FAERS Safety Report 11021981 (Version 7)
Quarter: 2016Q1

REPORT INFORMATION
  Report Type: Spontaneous
  Country: CA (occurrence: CA)
  Receive Date: 20150413
  Receipt Date: 20160219
  Transmission Date: 20160525
  Serious: Yes (Death, Hospitalization, Other)
  Sender: FDA-Public Use
  Company Number: CA-B.I. PHARMACEUTICALS,INC./RIDGEFIELD-2015-BI-19544CN

PATIENT
  Age: 86 Year
  Sex: Female
  Weight: 56 kg

DRUGS (5)
  1. PRADAXA [Suspect]
     Active Substance: DABIGATRAN ETEXILATE MESYLATE
     Indication: ANTICOAGULANT THERAPY
     Dosage: 220 MG
     Route: 048
     Dates: start: 201204, end: 201303
  2. PRADAXA [Suspect]
     Active Substance: DABIGATRAN ETEXILATE MESYLATE
     Dosage: 220 MG
     Route: 048
     Dates: start: 201305
  3. PRADAXA [Suspect]
     Active Substance: DABIGATRAN ETEXILATE MESYLATE
     Indication: ATRIAL FIBRILLATION
     Dosage: 110 MG
     Route: 048
     Dates: start: 201303, end: 201305
  4. SYMBICORT [Concomitant]
     Active Substance: BUDESONIDE\FORMOTEROL FUMARATE DIHYDRATE
     Indication: ASTHMA
     Dosage: DOSE PER APPLICATION: 200 PUFFS; DAILY DOSE: 400 PUFFS
     Route: 065
  5. ACTONEL [Concomitant]
     Active Substance: RISEDRONATE SODIUM
     Indication: OSTEOPOROSIS
     Route: 065

REACTIONS (16)
  - Breast cancer [Unknown]
  - Coma [Unknown]
  - Mydriasis [Unknown]
  - Areflexia [Unknown]
  - Lung disorder [Unknown]
  - Subarachnoid haemorrhage [Fatal]
  - Hyporeflexia [Unknown]
  - Fall [Unknown]
  - Hydrocephalus [Unknown]
  - Unresponsive to stimuli [Unknown]
  - Corneal reflex decreased [Unknown]
  - Brain oedema [Unknown]
  - Intraventricular haemorrhage [Fatal]
  - Loss of consciousness [Unknown]
  - Joint hyperextension [Unknown]
  - Posturing [Unknown]

NARRATIVE: CASE EVENT DATE: 20121113
